FAERS Safety Report 9015765 (Version 1)
Quarter: 2013Q1

REPORT INFORMATION
  Report Type: Spontaneous
  Country: NL (occurrence: None)
  Receive Date: 20130103
  Receipt Date: 20130103
  Transmission Date: 20140127
  Serious: Yes (Other)
  Sender: FDA-Public Use
  Company Number: 2012-22773

PATIENT
  Age: 29 Year
  Sex: Female

DRUGS (3)
  1. MINOCYCLINE HCL (WATSON LABORATORIES) [Suspect]
     Indication: ACNE
     Route: 048
     Dates: start: 201207, end: 201208
  2. CARBAMAZEPINE [Suspect]
     Indication: EPILEPSY
     Dosage: QAM
     Route: 048
  3. MICROGYNON  /00022701/ (ETHINYLESTRADIOL, LEVONORGESTREL) [Concomitant]

REACTIONS (3)
  - Convulsion [None]
  - Drug interaction [None]
  - Drug ineffective [None]
